FAERS Safety Report 9099613 (Version 1)
Quarter: 2013Q1

REPORT INFORMATION
  Report Type: Spontaneous
  Country: US (occurrence: US)
  Receive Date: 20130214
  Receipt Date: 20130214
  Transmission Date: 20140127
  Serious: No
  Sender: FDA-Public Use
  Company Number: US-PFIZER INC-2013057011

PATIENT
  Age: 47 Year
  Sex: Female
  Weight: 43.54 kg

DRUGS (2)
  1. LYRICA [Suspect]
     Indication: ANXIETY
     Dosage: 50 MG, 3X/DAY
     Route: 048
     Dates: start: 201212
  2. SYNTHROID [Concomitant]
     Indication: GOITRE
     Dosage: UNK

REACTIONS (5)
  - Drug dose omission [Unknown]
  - Drug ineffective [Not Recovered/Not Resolved]
  - Vision blurred [Unknown]
  - Visual impairment [Unknown]
  - Depression [Not Recovered/Not Resolved]
